FAERS Safety Report 16592479 (Version 1)
Quarter: 2019Q3

REPORT INFORMATION
  Report Type: Spontaneous
  Country: US (occurrence: US)
  Receive Date: 20190718
  Receipt Date: 20190718
  Transmission Date: 20191004
  Serious: No
  Sender: FDA-Public Use
  Company Number: US-NOVOPROD-666689

PATIENT

DRUGS (2)
  1. FIASP [Suspect]
     Active Substance: INSULIN ASPART
     Dosage: INCREASED THE DOSE
     Route: 058
  2. FIASP [Suspect]
     Active Substance: INSULIN ASPART
     Indication: PRODUCT USED FOR UNKNOWN INDICATION
     Dosage: UNK
     Route: 058

REACTIONS (1)
  - Wrong technique in product usage process [Recovered/Resolved]
